FAERS Safety Report 12654168 (Version 1)
Quarter: 2016Q3

REPORT INFORMATION
  Report Type: Spontaneous
  Country: US (occurrence: None)
  Receive Date: 20160815
  Receipt Date: 20160815
  Transmission Date: 20161109
  Serious: Yes (Other)
  Sender: FDA-Public Use
  Company Number: None

PATIENT
  Age: 49 Year
  Sex: Male
  Weight: 86.18 kg

DRUGS (4)
  1. REMICADE [Suspect]
     Active Substance: INFLIXIMAB
     Indication: PSORIATIC ARTHROPATHY
     Dosage: 2 WEEKS INTO A VEIN
     Route: 042
     Dates: start: 20160531, end: 20160614
  2. TYLENOL [Concomitant]
     Active Substance: ACETAMINOPHEN
  3. PREVACID [Concomitant]
     Active Substance: LANSOPRAZOLE
  4. ADVIL [Concomitant]
     Active Substance: IBUPROFEN

REACTIONS (6)
  - Lupus-like syndrome [None]
  - Cough [None]
  - Pain [None]
  - Pyrexia [None]
  - Urticaria [None]
  - Fatigue [None]

NARRATIVE: CASE EVENT DATE: 20160616
